FAERS Safety Report 19527377 (Version 1)
Quarter: 2021Q3

REPORT INFORMATION
  Report Type: Spontaneous
  Country: US (occurrence: US)
  Receive Date: 20210713
  Receipt Date: 20210713
  Transmission Date: 20211014
  Serious: No
  Sender: FDA-Public Use
  Company Number: US-APOTEX-2021AP015217

PATIENT
  Sex: Male

DRUGS (2)
  1. TRAVOPROST. [Suspect]
     Active Substance: TRAVOPROST
     Indication: INTRAOCULAR PRESSURE INCREASED
     Dosage: 1 DOSAGE FORM, QD, FOR HIS RIGHT EYE
     Route: 047
     Dates: start: 20210607
  2. COMBIGAN [Concomitant]
     Active Substance: BRIMONIDINE TARTRATE\TIMOLOL MALEATE
     Indication: INTRAOCULAR PRESSURE INCREASED
     Dosage: 1 DOSAGE FORM, BID, 1 DROP
     Route: 065

REACTIONS (6)
  - Product delivery mechanism issue [Unknown]
  - Abdominal discomfort [Not Recovered/Not Resolved]
  - Incorrect dose administered by product [Unknown]
  - Dyspepsia [Not Recovered/Not Resolved]
  - Product leakage [Unknown]
  - Product container issue [Unknown]
